FAERS Safety Report 6165492-9 (Version None)
Quarter: 2009Q2

REPORT INFORMATION
  Report Type: 
  Country: None (occurrence: None)
  Receive Date: 20090421
  Receipt Date: 20090421
  Transmission Date: 20091009
  Serious: Yes (Other)
  Sender: FDA-Public Use
  Company Number: None

PATIENT
  Age: 66 Year
  Sex: Male
  Weight: 62.4 kg

DRUGS (2)
  1. RITUXIMAB 2 MG/ML GENETECH [Suspect]
     Indication: HAIRY CELL LEUKAEMIA
     Dosage: 375 MG/M2 1 DOSE/WEEK/8 WKS IV
     Route: 042
     Dates: start: 20090410, end: 20090410
  2. RITUXIMAB [Suspect]

REACTIONS (5)
  - HEART RATE INCREASED [None]
  - HYPERTENSION [None]
  - INFUSION RELATED REACTION [None]
  - MYOCARDIAL ISCHAEMIA [None]
  - OXYGEN SATURATION DECREASED [None]
